FAERS Safety Report 9720120 (Version 1)
Quarter: 2013Q4

REPORT INFORMATION
  Report Type: Spontaneous
  Country: FR (occurrence: FR)
  Receive Date: 20131128
  Receipt Date: 20131128
  Transmission Date: 20140711
  Serious: Yes (Death, Hospitalization, Other)
  Sender: FDA-Public Use
  Company Number: FR-UCBSA-103721

PATIENT
  Age: 77 Year
  Sex: Female

DRUGS (10)
  1. KEPPRA [Suspect]
     Dosage: LONG TERM
     Route: 048
  2. COUMADINE [Suspect]
     Dosage: 1.5 TABLET ON DAY 1 AND 2 TABLET ON DAY 2 (DOSE STRENGTH:2MG) (LONG TERM)
     Route: 048
     Dates: end: 20130927
  3. PAROXETINE HYDROCHLORIDE ANHYDROUS [Suspect]
     Dosage: LONG TERM
     Route: 048
  4. DIGOXINE NATIVELLE [Suspect]
     Dosage: LONG TERM
     Route: 048
     Dates: end: 20130926
  5. LASILIX FAIBLE [Suspect]
     Dosage: LONG TERM
     Route: 048
  6. ALDACTONE [Suspect]
     Dosage: LONG TERM
     Route: 048
  7. INEXIUM [Suspect]
     Route: 048
  8. TARDYFERON [Suspect]
     Dosage: LONG TERM
     Route: 048
     Dates: end: 20130927
  9. IMOVANE [Suspect]
     Dosage: LONG TERM
     Route: 048
     Dates: end: 20130926
  10. VITAMIN K [Concomitant]
     Dosage: 2.5 MG
     Route: 042

REACTIONS (5)
  - Haematoma [Fatal]
  - Melaena [Unknown]
  - Renal failure [Unknown]
  - Rhabdomyolysis [Unknown]
  - Dehydration [Unknown]
